FAERS Safety Report 4658350-X (Version None)
Quarter: 2005Q2

REPORT INFORMATION
  Report Type: 
  Country: None (occurrence: None)
  Receive Date: 20050511
  Receipt Date: 20050502
  Transmission Date: 20051028
  Serious: Yes (Hospitalization)
  Sender: FDA-Public Use
  Company Number: JP-JNJFOC-20050404027

PATIENT
  Sex: Female
  Weight: 50 kg

DRUGS (14)
  1. REMICADE [Suspect]
     Route: 042
  2. REMICADE [Suspect]
     Route: 042
  3. REMICADE [Suspect]
     Indication: RHEUMATOID ARTHRITIS
     Route: 042
  4. PREDONIN [Suspect]
     Route: 049
  5. PREDONIN [Suspect]
     Route: 049
  6. PREDONIN [Suspect]
     Indication: RHEUMATOID ARTHRITIS
     Route: 049
  7. METHOTREXATE [Suspect]
  8. METHOTREXATE [Suspect]
     Indication: RHEUMATOID ARTHRITIS
  9. OSTELUC [Concomitant]
     Indication: RHEUMATOID ARTHRITIS
     Route: 049
     Dates: start: 20041229
  10. ISCOTIN [Concomitant]
     Route: 049
     Dates: start: 20041229
  11. MARZULENE S [Concomitant]
     Route: 049
     Dates: start: 20041229
  12. MARZULENE S [Concomitant]
     Route: 049
     Dates: start: 20041229
  13. DIDRONEL [Concomitant]
     Route: 049
     Dates: start: 20041229
  14. PYDOXAL [Concomitant]
     Route: 049
     Dates: start: 20041229

REACTIONS (1)
  - PNEUMOCYSTIS JIROVECI PNEUMONIA [None]
